FAERS Safety Report 4932793-9 (Version None)
Quarter: 2006Q1

REPORT INFORMATION
  Report Type: 
  Country: None (occurrence: None)
  Receive Date: 20060302
  Receipt Date: 20060302
  Transmission Date: 20060701
  Serious: Yes (Life-Threatening, Hospitalization)
  Sender: FDA-Public Use
  Company Number: None

PATIENT
  Age: 26 Year
  Sex: Female
  Weight: 112 kg

DRUGS (4)
  1. REMICADE [Suspect]
     Indication: CROHN'S DISEASE
     Dosage: 560MG  ONCE  I.V.
     Route: 042
     Dates: start: 20060213
  2. PROZAC [Concomitant]
  3. PREDNISONE [Concomitant]
  4. MERCAPTOPURINE [Concomitant]

REACTIONS (9)
  - ARTHRALGIA [None]
  - FATIGUE [None]
  - HOT FLUSH [None]
  - MALAISE [None]
  - RASH [None]
  - SWELLING FACE [None]
  - THROAT IRRITATION [None]
  - TYPE IV HYPERSENSITIVITY REACTION [None]
  - VOMITING [None]
